FAERS Safety Report 9434189 (Version 1)
Quarter: 2013Q3

REPORT INFORMATION
  Report Type: Spontaneous
  Country: US (occurrence: None)
  Receive Date: 20130730
  Receipt Date: 20130730
  Transmission Date: 20140515
  Serious: Yes (Other)
  Sender: FDA-Public Use
  Company Number: None

PATIENT
  Age: 25 Year
  Sex: Female
  Weight: 56.4 kg

DRUGS (1)
  1. PARAGARD COPPER IUD [Suspect]
     Route: 015
     Dates: start: 20090323

REACTIONS (5)
  - Abdominal pain [None]
  - Chills [None]
  - Pyrexia [None]
  - Vomiting [None]
  - Pregnancy with contraceptive device [None]
